FAERS Safety Report 7998531-0 (Version None)
Quarter: 2011Q4

REPORT INFORMATION
  Report Type: 
  Country: None (occurrence: None)
  Receive Date: 20111221
  Receipt Date: 20111214
  Transmission Date: 20120403
  Serious: Yes (Death, Other)
  Sender: FDA-Public Use
  Company Number: US-ROXANE LABORATORIES, INC.-2011-RO-01806RO

PATIENT
  Age: 80 Year
  Sex: Male

DRUGS (3)
  1. MORPHINE [Suspect]
     Indication: BACK PAIN
     Route: 042
  2. MORPHINE [Suspect]
  3. FENTANYL [Suspect]
     Indication: BACK PAIN
     Route: 042

REACTIONS (6)
  - DEATH [None]
  - PNEUMONIA [None]
  - DELIRIUM [None]
  - FALL [None]
  - FEMUR FRACTURE [None]
  - DEEP VEIN THROMBOSIS [None]
